FAERS Safety Report 6035714-3 (Version None)
Quarter: 2009Q1

REPORT INFORMATION
  Report Type: 
  Country: None (occurrence: None)
  Receive Date: 20090112
  Receipt Date: 20090112
  Transmission Date: 20090719
  Serious: Yes (Other)
  Sender: FDA-Public Use
  Company Number: None

PATIENT
  Age: 16 Year
  Sex: Male
  Weight: 86.1834 kg

DRUGS (1)
  1. NORCO [Suspect]
     Indication: POSTOPERATIVE ANALGESIA

REACTIONS (1)
  - DYSKINESIA [None]
